FAERS Safety Report 17541113 (Version 1)
Quarter: 2020Q1

REPORT INFORMATION
  Report Type: Spontaneous
  Country: FR (occurrence: FR)
  Receive Date: 20200313
  Receipt Date: 20200313
  Transmission Date: 20200409
  Serious: Yes (Hospitalization)
  Sender: FDA-Public Use
  Company Number: FR-BAUSCH-BL-2020-007507

PATIENT
  Age: 54 Year
  Sex: Female
  Weight: 68 kg

DRUGS (11)
  1. PIPERACILLINE BASE [Interacting]
     Active Substance: PIPERACILLIN SODIUM
     Indication: ANTIBIOTIC THERAPY
     Route: 042
     Dates: start: 20190104, end: 20190108
  2. VANCOMYCINE [Interacting]
     Active Substance: VANCOMYCIN
     Indication: ANTIBIOTIC THERAPY
     Route: 042
     Dates: start: 20190104, end: 20190105
  3. PARACETAMOL [Concomitant]
     Active Substance: ACETAMINOPHEN
     Indication: PRODUCT USED FOR UNKNOWN INDICATION
     Route: 048
     Dates: start: 20190104
  4. ALPRAZOLAM. [Concomitant]
     Active Substance: ALPRAZOLAM
     Indication: PRODUCT USED FOR UNKNOWN INDICATION
     Route: 048
  5. SKENAN L.P [Concomitant]
     Active Substance: MORPHINE SULFATE
     Indication: PRODUCT USED FOR UNKNOWN INDICATION
     Dosage: MICROGRANULES
     Route: 048
     Dates: start: 20190104, end: 20190107
  6. DAPTOMYCINE [Interacting]
     Active Substance: DAPTOMYCIN
     Indication: ANTIBIOTIC THERAPY
     Route: 042
     Dates: start: 20190104, end: 20190108
  7. PROFENID [Interacting]
     Active Substance: KETOPROFEN
     Indication: PAIN
     Dosage: 1 TAKE
     Route: 042
     Dates: start: 20190104, end: 20190104
  8. AMLOR [Concomitant]
     Active Substance: AMLODIPINE BESYLATE
     Indication: PRODUCT USED FOR UNKNOWN INDICATION
     Route: 048
  9. LOVENOX [Concomitant]
     Active Substance: ENOXAPARIN SODIUM
     Indication: PRODUCT USED FOR UNKNOWN INDICATION
     Route: 058
     Dates: start: 20190105, end: 20190108
  10. GENTAMICINE [Suspect]
     Active Substance: GENTAMICIN
     Indication: ANTIBIOTIC THERAPY
     Dosage: 1 TAKE
     Route: 042
     Dates: start: 20190104, end: 20190104
  11. TAZOBACTAM [Interacting]
     Active Substance: TAZOBACTAM
     Indication: ANTIBIOTIC THERAPY
     Route: 042
     Dates: start: 20190104, end: 20190108

REACTIONS (1)
  - Acute kidney injury [Recovered/Resolved]

NARRATIVE: CASE EVENT DATE: 20190105
